FAERS Safety Report 23096834 (Version 5)
Quarter: 2023Q4

REPORT INFORMATION
  Report Type: Spontaneous
  Country: US (occurrence: US)
  Receive Date: 20231023
  Receipt Date: 20231218
  Transmission Date: 20240110
  Serious: No
  Sender: FDA-Public Use
  Company Number: US-PFIZER INC-PV202300173159

PATIENT
  Age: 64 Year
  Sex: Female

DRUGS (1)
  1. IBRANCE [Suspect]
     Active Substance: PALBOCICLIB
     Dosage: 125 MG

REACTIONS (14)
  - Fatigue [Not Recovered/Not Resolved]
  - Glossodynia [Unknown]
  - Eructation [Unknown]
  - Tongue coated [Unknown]
  - White blood cell count decreased [Unknown]
  - Asthenia [Unknown]
  - Sluggishness [Unknown]
  - Malaise [Unknown]
  - Pyrexia [Unknown]
  - Injection site warmth [Unknown]
  - Arthropod bite [Unknown]
  - Neoplasm progression [Unknown]
  - Insomnia [Unknown]
  - Nausea [Unknown]

NARRATIVE: CASE EVENT DATE: 20231115
